FAERS Safety Report 21766824 (Version 1)
Quarter: 2022Q4

REPORT INFORMATION
  Report Type: Other
  Country: JP (occurrence: None)
  Receive Date: 20221222
  Receipt Date: 20221222
  Transmission Date: 20230113
  Serious: Yes (Death, Other)
  Sender: FDA-Public Use
  Company Number: JP-Merck Healthcare KGaA-9373680

PATIENT
  Age: 70 Year
  Sex: Male

DRUGS (1)
  1. TEPMETKO [Suspect]
     Active Substance: TEPOTINIB HYDROCHLORIDE
     Indication: Lung adenocarcinoma stage IV
     Route: 048

REACTIONS (6)
  - Death [Fatal]
  - Nephropathy toxic [Unknown]
  - Malignant pleural effusion [Unknown]
  - Infectious pleural effusion [Unknown]
  - General physical health deterioration [Unknown]
  - Oedema [Unknown]
